FAERS Safety Report 13867484 (Version 3)
Quarter: 2022Q1

REPORT INFORMATION
  Report Type: Report from Study
  Country: US (occurrence: US)
  Receive Date: 20170814
  Receipt Date: 20220322
  Transmission Date: 20220423
  Serious: No
  Sender: FDA-Public Use
  Company Number: US-ACADIA PHARMACEUTICALS INC.-ACA-2017-004782

PATIENT
  Sex: Female

DRUGS (12)
  1. NUPLAZID [Suspect]
     Active Substance: PIMAVANSERIN TARTRATE
     Indication: Parkinson^s disease psychosis
     Dosage: 34 MG, QD
     Route: 048
     Dates: start: 20170710
  2. NUPLAZID [Suspect]
     Active Substance: PIMAVANSERIN TARTRATE
     Indication: Hallucination
  3. NUPLAZID [Suspect]
     Active Substance: PIMAVANSERIN TARTRATE
     Indication: Delusion
  4. AMLODIPINE [Concomitant]
     Active Substance: AMLODIPINE BESYLATE
  5. ATENOLOL\CHLORTHALIDONE [Concomitant]
     Active Substance: ATENOLOL\CHLORTHALIDONE
  6. BENAZEPRIL [Concomitant]
     Active Substance: BENAZEPRIL HYDROCHLORIDE
  7. CARBIDOPA [Concomitant]
     Active Substance: CARBIDOPA
  8. METFORMIN [Concomitant]
     Active Substance: METFORMIN HYDROCHLORIDE
  9. VITAMINS [Concomitant]
     Active Substance: VITAMINS
  10. PRAMIPEXOLE [Concomitant]
     Active Substance: PRAMIPEXOLE
  11. SIMVASTATIN [Concomitant]
     Active Substance: SIMVASTATIN
  12. TEMAZEPAM [Concomitant]
     Active Substance: TEMAZEPAM

REACTIONS (4)
  - Initial insomnia [Unknown]
  - Restlessness [Unknown]
  - Hallucination [Not Recovered/Not Resolved]
  - Drug ineffective [Unknown]
